FAERS Safety Report 4632233-3 (Version None)
Quarter: 2005Q2

REPORT INFORMATION
  Report Type: 
  Country: None (occurrence: None)
  Receive Date: 20050411
  Receipt Date: 20050331
  Transmission Date: 20051028
  Serious: Yes (Hospitalization)
  Sender: FDA-Public Use
  Company Number: PHHO2005US05262

PATIENT
  Age: 37 Year
  Sex: Female

DRUGS (2)
  1. CYCLOSPORINE [Suspect]
     Indication: RENAL TRANSPLANT
     Dosage: 350 MG, BID
     Route: 048
     Dates: start: 20050120
  2. CYCLOSPORINE [Suspect]
     Dosage: 275 MG, BID
     Route: 048

REACTIONS (4)
  - BLOOD CREATININE INCREASED [None]
  - IMMUNOSUPPRESSANT DRUG LEVEL INCREASED [None]
  - INCISIONAL DRAINAGE [None]
  - RENAL DISORDER [None]
